FAERS Safety Report 18217162 (Version 1)
Quarter: 2020Q3

REPORT INFORMATION
  Report Type: Spontaneous
  Country: US (occurrence: US)
  Receive Date: 20200831
  Receipt Date: 20200831
  Transmission Date: 20201103
  Serious: Yes (Hospitalization)
  Sender: FDA-Public Use
  Company Number: None

PATIENT
  Age: 54 Year
  Sex: Male
  Weight: 107.95 kg

DRUGS (2)
  1. AMOCILLIN/CLAVULANATE (AMOXICILLIN TRIHYDRATE 875MG/CLAVULANATE K 125M [Suspect]
     Active Substance: AMOXICILLIN\CLAVULANATE POTASSIUM
     Indication: SINUSITIS
     Route: 048
     Dates: start: 20200222, end: 20200302
  2. ACETAMINOPHEN (ACETAMINOPHEN 325MG TAB) [Suspect]
     Active Substance: ACETAMINOPHEN
     Route: 048
     Dates: start: 20200227, end: 20200305

REACTIONS (3)
  - Cholestatic liver injury [None]
  - Hepatic enzyme increased [None]
  - Hepatotoxicity [None]

NARRATIVE: CASE EVENT DATE: 20200306
